FAERS Safety Report 6616885-4 (Version None)
Quarter: 2010Q1

REPORT INFORMATION
  Report Type: 
  Country: None (occurrence: None)
  Receive Date: 20100301
  Receipt Date: 20100219
  Transmission Date: 20100710
  Serious: Yes (Other)
  Sender: FDA-Public Use
  Company Number: 2010SP010901

PATIENT
  Age: 50 Year
  Sex: Male
  Weight: 69 kg

DRUGS (3)
  1. REMERON [Suspect]
     Indication: DEPRESSION
     Dosage: 30 MG;QD;PO ; 7.5 MG;QD;PO
     Route: 048
     Dates: start: 20091211, end: 20100209
  2. REMERON [Suspect]
     Indication: DEPRESSION
     Dosage: 30 MG;QD;PO ; 7.5 MG;QD;PO
     Route: 048
     Dates: start: 20100210
  3. LENDORM [Suspect]
     Indication: SLEEP DISORDER
     Dosage: 0.25 MG;PO
     Route: 048
     Dates: start: 20091211, end: 20100209

REACTIONS (1)
  - INTRAOCULAR PRESSURE INCREASED [None]
